FAERS Safety Report 9743266 (Version 1)
Quarter: 2013Q4

REPORT INFORMATION
  Report Type: Spontaneous
  Country: US (occurrence: US)
  Receive Date: 20131210
  Receipt Date: 20131210
  Transmission Date: 20140711
  Serious: No
  Sender: FDA-Public Use
  Company Number: US-GILEAD-2009-0025598

PATIENT
  Sex: Female
  Weight: 67.13 kg

DRUGS (9)
  1. LETAIRIS [Suspect]
     Indication: PULMONARY ARTERIAL HYPERTENSION
     Route: 048
     Dates: start: 20081205, end: 20091118
  2. REVATIO [Concomitant]
  3. QUINAPRIL/HCTZ [Concomitant]
  4. LANOXIN [Concomitant]
  5. LASIX [Concomitant]
  6. URSO [Concomitant]
  7. NOVOLIN N [Concomitant]
  8. NOVOLOG [Concomitant]
  9. NADOLOL [Concomitant]

REACTIONS (1)
  - Unevaluable event [Unknown]
